APPROVED DRUG PRODUCT: OLANZAPINE
Active Ingredient: OLANZAPINE
Strength: 7.5MG
Dosage Form/Route: TABLET;ORAL
Application: A076000 | Product #003
Applicant: TEVA PHARMACEUTICALS USA
Approved: Oct 24, 2011 | RLD: No | RS: No | Type: DISCN